FAERS Safety Report 24628199 (Version 2)
Quarter: 2024Q4

REPORT INFORMATION
  Report Type: Spontaneous
  Country: US (occurrence: US)
  Receive Date: 20241117
  Receipt Date: 20241223
  Transmission Date: 20250115
  Serious: No
  Sender: SANOFI AVENTIS
  Company Number: US-SA-2024SA326205

PATIENT
  Age: 77 Year
  Sex: Female

DRUGS (1)
  1. DUPIXENT [Suspect]
     Active Substance: DUPILUMAB
     Indication: Dermatitis atopic
     Dosage: 300 MG, QOW
     Route: 058

REACTIONS (8)
  - Somnolence [Unknown]
  - Nausea [Unknown]
  - Fatigue [Unknown]
  - Pain in extremity [Unknown]
  - Presyncope [Unknown]
  - Abdominal pain upper [Unknown]
  - Injection site discolouration [Unknown]
  - Dizziness [Unknown]
